FAERS Safety Report 17505515 (Version 1)
Quarter: 2020Q1

REPORT INFORMATION
  Report Type: Spontaneous
  Country: US (occurrence: US)
  Receive Date: 20200225
  Receipt Date: 20200225
  Transmission Date: 20200409
  Serious: Yes (Hospitalization)
  Sender: FDA-Public Use
  Company Number: None

PATIENT
  Age: 75 Year
  Sex: Male

DRUGS (1)
  1. FUROSEMIDE (FUROSEMIDE 80MG TAB) [Suspect]
     Active Substance: FUROSEMIDE
     Indication: CARDIAC FAILURE CONGESTIVE
     Dates: start: 20190205, end: 20200216

REACTIONS (5)
  - Chronic obstructive pulmonary disease [None]
  - Condition aggravated [None]
  - Treatment noncompliance [None]
  - Respiratory syncytial virus infection [None]
  - Cardiac failure [None]

NARRATIVE: CASE EVENT DATE: 20200217
